FAERS Safety Report 15450970 (Version 7)
Quarter: 2019Q2

REPORT INFORMATION
  Report Type: Report from Study
  Country: CA (occurrence: CA)
  Receive Date: 20181001
  Receipt Date: 20190607
  Transmission Date: 20190711
  Serious: Yes (Hospitalization, Other)
  Sender: FDA-Public Use
  Company Number: PHHY2018CA106334

PATIENT
  Age: 47 Year
  Sex: Female

DRUGS (2)
  1. TASIGNA [Suspect]
     Active Substance: NILOTINIB
     Indication: CHRONIC MYELOID LEUKAEMIA
     Dosage: 300 MG, BID
     Route: 048
     Dates: start: 20180908, end: 20180910
  2. TASIGNA [Suspect]
     Active Substance: NILOTINIB
     Dosage: 300 MG, BID
     Route: 048
     Dates: start: 20180922

REACTIONS (23)
  - Pruritus [Unknown]
  - Swelling [Unknown]
  - Anxiety [Unknown]
  - Alopecia [Unknown]
  - Gastrointestinal tract irritation [Unknown]
  - Skin irritation [Unknown]
  - Dysphagia [Unknown]
  - Acne [Recovered/Resolved]
  - Dental restoration failure [Unknown]
  - Arthralgia [Unknown]
  - Muscle tightness [Unknown]
  - Pancreatitis [Unknown]
  - Arthropod bite [Unknown]
  - Enlarged uvula [Unknown]
  - Therapeutic response delayed [Unknown]
  - Back pain [Unknown]
  - Feeling abnormal [Unknown]
  - Lipase increased [Unknown]
  - Hordeolum [Unknown]
  - Cholelithiasis [Unknown]
  - Nasopharyngitis [Unknown]
  - Dry skin [Unknown]
  - Fatigue [Unknown]

NARRATIVE: CASE EVENT DATE: 20180910
